FAERS Safety Report 5598727-1 (Version None)
Quarter: 2008Q1

REPORT INFORMATION
  Report Type: 
  Country: None (occurrence: None)
  Receive Date: 20080122
  Receipt Date: 20080109
  Transmission Date: 20080703
  Serious: Yes (Hospitalization)
  Sender: FDA-Public Use
  Company Number: JP-BRISTOL-MYERS SQUIBB COMPANY-14036495

PATIENT
  Age: 21 Year
  Sex: Male

DRUGS (1)
  1. ARIPIPRAZOLE [Suspect]
     Indication: SCHIZOPHRENIA
     Dosage: 24 MG/DAY (20-JUL-2007-NOT CONTINUING); 15 MG/DAY (UNKNOWN-04-JAN-2007)
     Route: 048
     Dates: start: 20070720, end: 20080104

REACTIONS (4)
  - AGITATION [None]
  - EMOTIONAL DISORDER [None]
  - HALLUCINATION, AUDITORY [None]
  - RESTLESSNESS [None]
